FAERS Safety Report 12477078 (Version 1)
Quarter: 2016Q2

REPORT INFORMATION
  Report Type: Spontaneous
  Country: US (occurrence: US)
  Receive Date: 20160617
  Receipt Date: 20160617
  Transmission Date: 20160815
  Serious: Yes (Hospitalization, Other)
  Sender: FDA-Public Use
  Company Number: PHHY2016US080347

PATIENT
  Age: 18 Year
  Sex: Male

DRUGS (4)
  1. CICLOSPORIN [Suspect]
     Active Substance: CYCLOSPORINE
     Indication: RENAL TRANSPLANT
     Route: 065
  2. CICLOSPORIN [Suspect]
     Active Substance: CYCLOSPORINE
     Indication: IMMUNOSUPPRESSANT DRUG THERAPY
  3. PREDNISONE. [Suspect]
     Active Substance: PREDNISONE
     Indication: RENAL TRANSPLANT
     Route: 065
  4. PREDNISONE. [Suspect]
     Active Substance: PREDNISONE
     Indication: IMMUNOSUPPRESSANT DRUG THERAPY

REACTIONS (10)
  - Kidney transplant rejection [Unknown]
  - Pulmonary cavitation [Unknown]
  - Mucormycosis [Unknown]
  - Back pain [Unknown]
  - Mycoplasma infection [Unknown]
  - Haemoptysis [Unknown]
  - Lung consolidation [Unknown]
  - Pyrexia [Unknown]
  - Chills [Unknown]
  - Renal tubular necrosis [Unknown]
